FAERS Safety Report 17258552 (Version 2)
Quarter: 2020Q1

REPORT INFORMATION
  Report Type: Report from Study
  Country: JP (occurrence: JP)
  Receive Date: 20200110
  Receipt Date: 20200116
  Transmission Date: 20200409
  Serious: Yes (Hospitalization)
  Sender: FDA-Public Use
  Company Number: JP-ROCHE-2520296

PATIENT
  Age: 69 Year
  Sex: Male
  Weight: 45.7 kg

DRUGS (19)
  1. ALIMTA [Suspect]
     Active Substance: PEMETREXED DISODIUM
     Indication: LUNG NEOPLASM MALIGNANT
     Route: 042
     Dates: start: 20190530, end: 20190902
  2. PREDONINE [Suspect]
     Active Substance: PREDNISOLONE
     Indication: PNEUMONITIS
     Dosage: 20MG(WHEN BEGINNING, BE DECREASING GRADUALLY BY 45MG).
     Route: 042
     Dates: start: 20190912
  3. PREDONINE [Suspect]
     Active Substance: PREDNISOLONE
     Dosage: (WHEN BEGINNING, BE DECREASING GRADUALLY BY 30 MG).
     Route: 042
     Dates: start: 20191210
  4. TAKECAB [Concomitant]
     Active Substance: VONOPRAZAN FUMURATE
     Indication: PROPHYLAXIS AGAINST GASTROINTESTINAL ULCER
     Dosage: AFTER THE BREAKFAST
     Route: 048
     Dates: start: 20190603
  5. CALONAL [Concomitant]
     Active Substance: ACETAMINOPHEN
     Route: 048
     Dates: start: 20190906
  6. AVELOX [Suspect]
     Active Substance: MOXIFLOXACIN HYDROCHLORIDE
     Indication: PNEUMONITIS
     Route: 048
     Dates: start: 20190911, end: 20190912
  7. MAGMITT [Concomitant]
     Active Substance: MAGNESIUM OXIDE
     Indication: CONSTIPATION
     Dosage: AFTER EVERY MEAL
     Route: 048
     Dates: start: 20190523
  8. BEVACIZUMAB. [Suspect]
     Active Substance: BEVACIZUMAB
     Indication: LUNG NEOPLASM MALIGNANT
     Route: 041
     Dates: start: 20190530, end: 20190902
  9. PREDONINE [Suspect]
     Active Substance: PREDNISOLONE
     Indication: PNEUMONITIS
     Route: 048
     Dates: start: 20191001, end: 20191022
  10. LOXOPROFEN [Suspect]
     Active Substance: LOXOPROFEN
     Indication: PYREXIA
  11. PREDONINE [Suspect]
     Active Substance: PREDNISOLONE
     Indication: ACUTE KIDNEY INJURY
     Dosage: 20MG(WHEN BEGINNING, BE DECREASING GRADUALLY BY 45MG).
     Route: 042
     Dates: start: 20190912
  12. SENNA [Concomitant]
     Active Substance: SENNA LEAF\SENNOSIDES\SENNOSIDES A AND B
     Indication: CONSTIPATION
     Dosage: AT THE OBSTIPATION
     Route: 048
     Dates: start: 20190523
  13. BENAMBAX [Concomitant]
     Active Substance: PENTAMIDINE
     Indication: INFECTION PROPHYLAXIS
     Dosage: DOSAGE IS UNCERTAIN.
     Route: 055
     Dates: start: 20191018, end: 20191018
  14. CARBOPLATIN. [Suspect]
     Active Substance: CARBOPLATIN
     Indication: LUNG NEOPLASM MALIGNANT
     Dosage: AUC 5
     Route: 041
     Dates: start: 20190530
  15. LIXIANA OD [Suspect]
     Active Substance: EDOXABAN TOSYLATE
     Indication: DRUG ERUPTION
     Dosage: AFTER THE BREAKFAST
     Route: 048
     Dates: start: 20190927
  16. FAMOTIDINE. [Concomitant]
     Active Substance: FAMOTIDINE
     Indication: PROPHYLAXIS
     Dosage: AFTER THE BREAKFAST
     Route: 048
     Dates: start: 20191016, end: 20191022
  17. ATEZOLIZUMAB. [Suspect]
     Active Substance: ATEZOLIZUMAB
     Indication: LUNG NEOPLASM MALIGNANT
     Route: 041
     Dates: start: 20190530, end: 20190902
  18. LEVOFLOXACIN HEMIHYDRATE [Suspect]
     Active Substance: LEVOFLOXACIN
     Indication: PNEUMONITIS
     Route: 048
     Dates: start: 20190908
  19. LOXOPROFEN [Suspect]
     Active Substance: LOXOPROFEN
     Indication: PAIN
     Route: 048
     Dates: start: 20190910, end: 20190911

REACTIONS (3)
  - Alanine aminotransferase increased [Not Recovered/Not Resolved]
  - Hypotension [Recovered/Resolved]
  - Aspartate aminotransferase increased [Not Recovered/Not Resolved]

NARRATIVE: CASE EVENT DATE: 20190912
